FAERS Safety Report 13097163 (Version 1)
Quarter: 2017Q1

REPORT INFORMATION
  Report Type: Spontaneous
  Country: US (occurrence: US)
  Receive Date: 20170107
  Receipt Date: 20170107
  Transmission Date: 20170428
  Serious: Yes (Other)
  Sender: FDA-Public Use
  Company Number: None

PATIENT
  Age: 54 Year
  Sex: Male
  Weight: 77.4 kg

DRUGS (5)
  1. SIMVASTATIN. [Concomitant]
     Active Substance: SIMVASTATIN
  2. METFORMIN HCI EXTENDED RELEASE SUN PHARMACEUTICALS [Suspect]
     Active Substance: METFORMIN HYDROCHLORIDE
     Indication: BLOOD GLUCOSE INCREASED
     Dosage: ?          QUANTITY:100 TABLET(S);?
     Route: 048
     Dates: start: 20170104, end: 20170106
  3. MICARDIS [Concomitant]
     Active Substance: TELMISARTAN
  4. FISH OIL [Concomitant]
     Active Substance: FISH OIL
  5. ASPIRIN. [Concomitant]
     Active Substance: ASPIRIN

REACTIONS (10)
  - Product formulation issue [None]
  - Poor quality sleep [None]
  - Drug effect decreased [None]
  - Product size issue [None]
  - Discomfort [None]
  - Product quality issue [None]
  - Feeling hot [None]
  - Headache [None]
  - Somnolence [None]
  - Thinking abnormal [None]

NARRATIVE: CASE EVENT DATE: 20170105
